FAERS Safety Report 9029339 (Version 1)
Quarter: 2013Q1

REPORT INFORMATION
  Report Type: Spontaneous
  Country: US (occurrence: US)
  Receive Date: 20130125
  Receipt Date: 20130125
  Transmission Date: 20140127
  Serious: No
  Sender: FDA-Public Use
  Company Number: US-BAYER-2013-009601

PATIENT
  Age: 54 Year
  Sex: Female

DRUGS (2)
  1. YAZ [Suspect]
     Indication: ENDOMETRIOSIS
     Dosage: UNK
     Route: 048
  2. GIANVI [Suspect]
     Indication: ENDOMETRIOSIS
     Dosage: UNK
     Route: 048
     Dates: end: 2012

REACTIONS (5)
  - Off label use [None]
  - Back pain [Recovered/Resolved]
  - Chest pain [Recovered/Resolved]
  - Menopause [None]
  - Off label use [None]
